FAERS Safety Report 7945914-0 (Version None)
Quarter: 2011Q4

REPORT INFORMATION
  Report Type: 
  Country: None (occurrence: None)
  Receive Date: 20111129
  Receipt Date: 20111118
  Transmission Date: 20120403
  Serious: Yes (Hospitalization)
  Sender: FDA-Public Use
  Company Number: PHHO2011KR018465

PATIENT
  Sex: Male
  Weight: 76 kg

DRUGS (3)
  1. SANDIMMUNE [Concomitant]
     Indication: IMMUNOSUPPRESSION
     Dosage: 150 MG, BID
     Route: 048
     Dates: start: 20111007
  2. MYCOPHENOLIC ACID [Suspect]
     Indication: RENAL TRANSPLANT
     Dosage: 360 MG, BID
     Route: 048
     Dates: start: 20111007
  3. PRANDIN [Concomitant]
     Indication: IMMUNOSUPPRESSION
     Dosage: 10 MG, QD
     Route: 048
     Dates: start: 20111014

REACTIONS (2)
  - BLOOD CREATININE INCREASED [None]
  - URETERIC STENOSIS [None]
